FAERS Safety Report 7786729-6 (Version None)
Quarter: 2011Q3

REPORT INFORMATION
  Report Type: 
  Country: None (occurrence: None)
  Receive Date: 20110929
  Receipt Date: 20110927
  Transmission Date: 20111222
  Serious: Yes (Other)
  Sender: FDA-Public Use
  Company Number: US-PFIZER INC-2011230883

PATIENT
  Sex: Female
  Weight: 63.492 kg

DRUGS (5)
  1. MIDOL EXTENDED RELIEF CAPLETS [Concomitant]
     Indication: DYSMENORRHOEA
     Dosage: UNK
  2. GEODON [Suspect]
     Dosage: 20MG IN MORNING AND 40MG IN THE NIGHT
     Route: 048
     Dates: start: 20110925, end: 20110925
  3. GEODON [Suspect]
     Indication: BIPOLAR DISORDER
     Dosage: 20 MG, DAILY
     Route: 048
     Dates: start: 20110923, end: 20110923
  4. GEODON [Suspect]
     Dosage: 20 MG, 2X/DAY
     Route: 048
     Dates: start: 20110924, end: 20110924
  5. ALLEGRA [Concomitant]
     Indication: HYPERSENSITIVITY
     Dosage: 180 MG, DAILY
     Route: 048

REACTIONS (12)
  - EMOTIONAL DISORDER [None]
  - EUPHORIC MOOD [None]
  - ANXIETY [None]
  - FEELING JITTERY [None]
  - RESTLESSNESS [None]
  - IRRITABILITY [None]
  - ENERGY INCREASED [None]
  - FATIGUE [None]
  - INSOMNIA [None]
  - INCORRECT DOSE ADMINISTERED [None]
  - ABNORMAL BEHAVIOUR [None]
  - NERVOUSNESS [None]
